FAERS Safety Report 5030758-2 (Version None)
Quarter: 2006Q2

REPORT INFORMATION
  Report Type: 
  Country: None (occurrence: None)
  Receive Date: 20060615
  Receipt Date: 20060607
  Transmission Date: 20061013
  Serious: Yes (Other)
  Sender: FDA-Public Use
  Company Number: GXKR2006DE03268

PATIENT
  Age: 2 Year
  Sex: Male
  Weight: 15.5 kg

DRUGS (5)
  1. AMOXICILLIN TRIHYDRATE (NGX)(AMOXICILLIN TRIHYDRATE) GRANULATE FOR ORA [Suspect]
     Indication: BRONCHOPNEUMONIA
     Dosage: 300 MG, TID, ORAL
     Route: 048
     Dates: start: 20060329, end: 20060403
  2. IBUPROFEN [Concomitant]
  3. AMBROHEXAL (AMBROXOL HYDROCHLORIDE) [Concomitant]
  4. SILOMAT (CLOBUTINOL HYDROCHLORIDE) [Concomitant]
  5. SINUPRET (ASCORBIC ACID, GENTIAN, GENTIANA LUTEA ROOT, PRIMULA FLOWERS [Concomitant]

REACTIONS (5)
  - ABNORMAL BEHAVIOUR [None]
  - ANGER [None]
  - CONVERSION DISORDER [None]
  - FOOD AVERSION [None]
  - SCREAMING [None]
